FAERS Safety Report 4606799-3 (Version None)
Quarter: 2005Q1

REPORT INFORMATION
  Report Type: 
  Country: None (occurrence: None)
  Receive Date: 20050314
  Receipt Date: 20050302
  Transmission Date: 20050727
  Serious: Yes (Death, Hospitalization, Other)
  Sender: FDA-Public Use
  Company Number: JP-BRISTOL-MYERS SQUIBB COMPANY-12891172

PATIENT
  Age: 87 Year
  Sex: Male

DRUGS (8)
  1. GATIFLO TABS 100 MG [Suspect]
     Indication: URINARY TRACT INFECTION
     Route: 048
     Dates: start: 20050225, end: 20050302
  2. HOKUNALIN [Concomitant]
     Route: 062
     Dates: start: 20050225
  3. THEOPHYLLINE [Concomitant]
     Route: 048
     Dates: start: 20050225
  4. ROHYPNOL [Concomitant]
     Route: 048
     Dates: start: 20050225
  5. PREDONINE [Concomitant]
     Route: 048
     Dates: start: 20050225
  6. RENIVACE [Concomitant]
     Route: 048
     Dates: start: 20050225
  7. FAMOTIDINE [Concomitant]
     Route: 048
     Dates: start: 20050225
  8. SAWADOL L [Concomitant]
     Route: 048
     Dates: start: 20050225

REACTIONS (3)
  - HYPERTENSION [None]
  - HYPOGLYCAEMIA [None]
  - MALAISE [None]
